FAERS Safety Report 4635670-6 (Version None)
Quarter: 2005Q2

REPORT INFORMATION
  Report Type: 
  Country: None (occurrence: None)
  Receive Date: 20050414
  Receipt Date: 20050331
  Transmission Date: 20051028
  Serious: Yes (Hospitalization, Other)
  Sender: FDA-Public Use
  Company Number: HQWYE628801APR05

PATIENT
  Age: 50 Year
  Sex: Female

DRUGS (21)
  1. ADVIL [Suspect]
     Dosage: ORAL
     Route: 048
     Dates: start: 20050201, end: 20050216
  2. VOLTAREN [Suspect]
     Dates: start: 20050201, end: 20050216
  3. SULFASALAZINE [Concomitant]
  4. PREDNISONE TAB [Concomitant]
  5. CALCIUM CARBONATE (CALCIUM CARBONATE) [Concomitant]
  6. ACTONEL [Concomitant]
  7. LANSOPRAZOLE [Concomitant]
  8. METHOTREXATE [Concomitant]
  9. FOLIC ACID [Concomitant]
  10. REMICADE [Concomitant]
  11. VALPROATE SODIUM [Concomitant]
  12. MIRTAZAPINE [Concomitant]
  13. TERCIAN (CYAMEMAZINE) [Concomitant]
  14. XANAX [Concomitant]
  15. LORMETAZEPAM (LORMETAZEPAM) [Concomitant]
  16. PROPRANOLOL HYDROCHLORIDE [Concomitant]
  17. SEGLOR (DIHYDROERGOTAMINE MESILATE) [Concomitant]
  18. PROPOFAN (CAFFEINE/CARBASALATE CALCIUM/CHLORPHENAMINE MALEATE/DEXTROPR [Concomitant]
  19. SURGESTONE (PROMEGESTONE) [Concomitant]
  20. VEINAMITOL (TROXERUTIN) [Concomitant]
  21. PHLOROGLUCINOL (PHLOROGLUCINOL) [Concomitant]

REACTIONS (1)
  - CYTOLYTIC HEPATITIS [None]
